FAERS Safety Report 4591706-2 (Version None)
Quarter: 2005Q1

REPORT INFORMATION
  Report Type: 
  Country: None (occurrence: None)
  Receive Date: 20050218
  Receipt Date: 20050208
  Transmission Date: 20050727
  Serious: Yes (Death, Other)
  Sender: FDA-Public Use
  Company Number: A-US2005-08726

PATIENT
  Sex: Male

DRUGS (5)
  1. TRACLEER [Suspect]
     Indication: PULMONARY HYPERTENSION
     Dosage: 125 MG, BID, ORAL; 62.5 MG, BID, ORAL
     Route: 048
     Dates: start: 20030821, end: 20030915
  2. TRACLEER [Suspect]
     Indication: PULMONARY HYPERTENSION
     Dosage: 125 MG, BID, ORAL; 62.5 MG, BID, ORAL
     Route: 048
     Dates: start: 20030916, end: 20040728
  3. DIGOXIN [Concomitant]
  4. LASIX [Concomitant]
  5. ALDACTONE [Concomitant]

REACTIONS (2)
  - ASCITES [None]
  - RIGHT VENTRICULAR FAILURE [None]
